FAERS Safety Report 14930838 (Version 1)
Quarter: 2018Q2

REPORT INFORMATION
  Report Type: Spontaneous
  Country: FR (occurrence: FR)
  Receive Date: 20180524
  Receipt Date: 20180524
  Transmission Date: 20180711
  Serious: Yes (Other)
  Sender: FDA-Public Use
  Company Number: FR-MERCK KGAA-2048361

PATIENT
  Age: 44 Year
  Sex: Female

DRUGS (1)
  1. NOVOTHYROX [Suspect]
     Active Substance: LEVOTHYROXINE SODIUM
     Indication: HYPOTHYROIDISM

REACTIONS (33)
  - Musculoskeletal stiffness [Recovering/Resolving]
  - Crying [Recovering/Resolving]
  - Mood swings [Recovering/Resolving]
  - Major depression [Recovering/Resolving]
  - Weight increased [Recovered/Resolved]
  - Loss of personal independence in daily activities [Recovering/Resolving]
  - Vertigo [Recovering/Resolving]
  - Negative thoughts [Recovering/Resolving]
  - Apathy [Recovering/Resolving]
  - Irritability [Recovered/Resolved]
  - Aggression [Recovering/Resolving]
  - Musculoskeletal pain [Recovered/Resolved]
  - Social avoidant behaviour [Recovering/Resolving]
  - Anxiety [Recovering/Resolving]
  - Depressed mood [Recovering/Resolving]
  - Nausea [Recovered/Resolved]
  - Movement disorder [Recovering/Resolving]
  - Sleep disorder [Recovered/Resolved]
  - Asthenia [Recovered/Resolved]
  - Paraesthesia [Recovered/Resolved]
  - Disturbance in attention [Recovering/Resolving]
  - General physical health deterioration [Recovering/Resolving]
  - Palpitations [Recovered/Resolved]
  - Hypoaesthesia [Recovering/Resolving]
  - Abulia [Recovered/Resolved]
  - Decreased appetite [Recovering/Resolving]
  - Tetany [Recovering/Resolving]
  - Hyperacusis [Recovering/Resolving]
  - Loss of libido [Recovering/Resolving]
  - Affect lability [Recovered/Resolved]
  - Fatigue [Recovering/Resolving]
  - Headache [Recovered/Resolved]
  - Blood thyroid stimulating hormone increased [None]

NARRATIVE: CASE EVENT DATE: 20171017
